FAERS Safety Report 16228320 (Version 1)
Quarter: 2019Q2

REPORT INFORMATION
  Report Type: Spontaneous
  Country: US (occurrence: US)
  Receive Date: 20190423
  Receipt Date: 20190423
  Transmission Date: 20190711
  Serious: Yes (Other)
  Sender: FDA-Public Use
  Company Number: US-NAPPMUNDI-USA-2019-0146225

PATIENT
  Sex: Male
  Weight: 105.21 kg

DRUGS (2)
  1. GABAPENTIN. [Concomitant]
     Active Substance: GABAPENTIN
     Indication: NEURALGIA
     Dosage: 300 MG, HS
     Route: 048
  2. OXYCONTIN [Suspect]
     Active Substance: OXYCODONE HYDROCHLORIDE
     Indication: INSOMNIA
     Dosage: 10 MG, UNK
     Route: 048

REACTIONS (3)
  - Prescription drug used without a prescription [Unknown]
  - Expired product administered [Unknown]
  - Intentional product misuse [Unknown]
